FAERS Safety Report 5396663-7 (Version None)
Quarter: 2007Q3

REPORT INFORMATION
  Report Type: 
  Country: None (occurrence: None)
  Receive Date: 20070725
  Receipt Date: 20070720
  Transmission Date: 20080115
  Serious: Yes (Hospitalization)
  Sender: FDA-Public Use
  Company Number: B0480033A

PATIENT
  Age: 62 Year
  Sex: Male

DRUGS (8)
  1. LAMIVUDINE [Suspect]
     Indication: HIV INFECTION
     Dosage: 300MG PER DAY
     Route: 048
     Dates: end: 20070601
  2. STOCRIN [Suspect]
     Indication: HIV INFECTION
     Dosage: 600MG PER DAY
     Route: 048
     Dates: start: 20060101, end: 20070601
  3. PANTOPRAZOLE SODIUM [Suspect]
     Indication: GASTRITIS
     Dosage: 40MG PER DAY
     Route: 048
     Dates: end: 20070601
  4. VIREAD [Suspect]
     Indication: HIV INFECTION
     Dosage: 245MG PER DAY
     Route: 048
     Dates: end: 20070601
  5. KEPPRA [Suspect]
     Indication: EPILEPSY
     Dosage: 500MG TWICE PER DAY
     Route: 048
     Dates: end: 20070601
  6. PRADIF [Suspect]
     Indication: PROSTATIC DISORDER
     Dosage: 400MG PER DAY
     Route: 048
     Dates: end: 20070601
  7. DUROGESIC TTS [Suspect]
     Indication: PAIN
     Dosage: 2.5MG TWO TIMES PER WEEK
     Route: 062
     Dates: end: 20070601
  8. VALCYTE [Suspect]
     Route: 048
     Dates: end: 20070612

REACTIONS (6)
  - DERMATITIS EXFOLIATIVE [None]
  - ERYTHEMA [None]
  - EXFOLIATIVE RASH [None]
  - PHOTOSENSITIVITY REACTION [None]
  - RASH ERYTHEMATOUS [None]
  - TOXIC SKIN ERUPTION [None]
